FAERS Safety Report 10587591 (Version 3)
Quarter: 2015Q1

REPORT INFORMATION
  Report Type: Spontaneous
  Country: CA (occurrence: CA)
  Receive Date: 20141117
  Receipt Date: 20150206
  Transmission Date: 20150720
  Serious: Yes (Death, Other)
  Sender: FDA-Public Use
  Company Number: CA-ELI_LILLY_AND_COMPANY-CA201411005543

PATIENT
  Age: 60 Year
  Sex: Female

DRUGS (5)
  1. DEXAMETHASONE. [Suspect]
     Active Substance: DEXAMETHASONE
     Indication: LYMPHOMA
     Dosage: 40 MG, CYCLICAL
     Route: 048
  2. GEMZAR [Suspect]
     Active Substance: GEMCITABINE HYDROCHLORIDE
     Indication: LYMPHOMA
     Dosage: 1000 MG/M2, CYCLICAL
     Route: 042
  3. CISPLATIN. [Suspect]
     Active Substance: CISPLATIN
     Indication: LYMPHOMA
     Dosage: 75 MG/M2, CYCLICAL
     Route: 042
  4. MELPHALAN [Suspect]
     Active Substance: MELPHALAN
     Indication: BONE MARROW CONDITIONING REGIMEN
     Dosage: UNK
     Route: 065
     Dates: start: 200404
  5. VP-16 [Suspect]
     Active Substance: ETOPOSIDE
     Indication: BONE MARROW CONDITIONING REGIMEN
     Dosage: UNK
     Route: 065
     Dates: start: 200404

REACTIONS (2)
  - Cardiomyopathy [Fatal]
  - Cardiac failure congestive [Not Recovered/Not Resolved]
